FAERS Safety Report 10724242 (Version 2)
Quarter: 2015Q1

REPORT INFORMATION
  Report Type: Spontaneous
  Country: FR (occurrence: FR)
  Receive Date: 20150120
  Receipt Date: 20150128
  Transmission Date: 20150721
  Serious: Yes (Hospitalization)
  Sender: FDA-Public Use
  Company Number: FR-PFIZER INC-2015016575

PATIENT
  Sex: Female

DRUGS (28)
  1. DEXAMETHASONE MERCK [Suspect]
     Active Substance: DEXAMETHASONE
     Dosage: UNK
     Route: 042
     Dates: start: 20140610, end: 20140804
  2. TAVANIC [Suspect]
     Active Substance: LEVOFLOXACIN
     Indication: ARTHRITIS BACTERIAL
     Dosage: UNK MG, UNK
     Route: 048
     Dates: start: 20140618, end: 20140722
  3. RIVOTRIL [Concomitant]
     Active Substance: CLONAZEPAM
     Dosage: UNK
     Route: 042
     Dates: start: 20140610, end: 20140710
  4. INEXIUM [Concomitant]
     Active Substance: ESOMEPRAZOLE
     Dosage: 20 MG, UNK
     Route: 048
     Dates: start: 20140618, end: 20140724
  5. KARDEGIC [Concomitant]
     Active Substance: ASPIRIN LYSINE
     Dosage: 160 MG, UNK
     Route: 048
     Dates: start: 20140614, end: 20140709
  6. TIENAM [Suspect]
     Active Substance: CILASTATIN SODIUM\IMIPENEM
     Dosage: UNK
     Route: 042
     Dates: start: 20140804, end: 20140805
  7. ROVALCYTE [Concomitant]
     Active Substance: VALGANCICLOVIR HYDROCHLORIDE
     Dosage: 450 MG, UNK
     Route: 048
     Dates: start: 20140731, end: 20140804
  8. ROCEPHINE [Concomitant]
     Active Substance: CEFTRIAXONE SODIUM
     Route: 042
  9. CLAMOXYL (AMOXICILLIN) [Suspect]
     Active Substance: AMOXICILLIN
     Indication: PNEUMONIA PNEUMOCOCCAL
  10. GENTAMICINE PANPHARMA [Suspect]
     Active Substance: GENTAMICIN
     Indication: PNEUMONIA PNEUMOCOCCAL
  11. HYDROCORTISONE UPJOHN [Suspect]
     Active Substance: HYDROCORTISONE
     Dosage: UNK
     Route: 042
     Dates: start: 20140805, end: 20140911
  12. LOVENOX [Concomitant]
     Active Substance: ENOXAPARIN SODIUM
     Route: 058
  13. CANCIDAS [Concomitant]
     Active Substance: CASPOFUNGIN ACETATE
     Route: 042
  14. HUMALOG [Concomitant]
     Active Substance: INSULIN LISPRO
     Route: 058
  15. CYMEVENE [Concomitant]
     Active Substance: GANCICLOVIR
     Dosage: 500 MG, UNK
     Route: 042
     Dates: start: 20140805, end: 20140911
  16. TAZOCILLINE [Suspect]
     Active Substance: PIPERACILLIN SODIUM\TAZOBACTAM SODIUM
     Dosage: UNK
     Route: 042
     Dates: start: 20140808, end: 20140830
  17. CLAFORAN [Suspect]
     Active Substance: CEFOTAXIME SODIUM
     Indication: PNEUMONIA PNEUMOCOCCAL
  18. LANTUS [Concomitant]
     Active Substance: INSULIN GLARGINE
     Route: 058
  19. CLAFORAN [Suspect]
     Active Substance: CEFOTAXIME SODIUM
     Indication: MENINGITIS PNEUMOCOCCAL
     Dosage: UNK
     Route: 042
     Dates: start: 20140610, end: 20140616
  20. BACTRIM [Suspect]
     Active Substance: SULFAMETHOXAZOLE\TRIMETHOPRIM
     Indication: ARTHRITIS BACTERIAL
     Dosage: UNK
     Dates: start: 20140618, end: 20140709
  21. FLAGYL [Suspect]
     Active Substance: METRONIDAZOLE\METRONIDAZOLE HYDROCHLORIDE
     Dosage: UNK
     Route: 048
     Dates: start: 20140620, end: 20140630
  22. AMIKACINE MYLAN [Suspect]
     Active Substance: AMIKACIN
     Dosage: UNK
     Dates: start: 20140804, end: 201408
  23. PARACETAMOL MACOPHARMA [Concomitant]
     Active Substance: ACETAMINOPHEN
     Dosage: UNK
     Route: 042
     Dates: start: 20140610, end: 20140620
  24. WELLVONE [Concomitant]
     Active Substance: ATOVAQUONE
     Dosage: UNK
     Dates: start: 20140728, end: 20140804
  25. CLAMOXYL (AMOXICILLIN) [Suspect]
     Active Substance: AMOXICILLIN
     Indication: MENINGITIS PNEUMOCOCCAL
     Dosage: UNK
     Route: 042
     Dates: start: 20140616, end: 20140620
  26. GENTAMICINE PANPHARMA [Suspect]
     Active Substance: GENTAMICIN
     Indication: MENINGITIS PNEUMOCOCCAL
     Dosage: UNK
     Route: 042
     Dates: start: 20140610, end: 20140610
  27. VANCOMYCINE MERCK [Suspect]
     Active Substance: VANCOMYCIN
     Dosage: 125 MG, 4X/DAY
     Route: 042
     Dates: start: 20140630, end: 20140728
  28. SEROPLEX [Concomitant]
     Active Substance: ESCITALOPRAM OXALATE
     Dosage: UNK
     Route: 048
     Dates: start: 20140718, end: 20140804

REACTIONS (15)
  - Septic shock [None]
  - Amyotrophy [Recovering/Resolving]
  - Cytomegalovirus infection [Recovered/Resolved]
  - Thrombocytopenia [None]
  - Duodenal perforation [None]
  - Bedridden [Recovering/Resolving]
  - Vasculitis cerebral [None]
  - Mania [Recovered/Resolved]
  - Escherichia sepsis [None]
  - Pancreatitis acute [Recovered/Resolved]
  - Pancreatic necrosis [None]
  - Candida test positive [None]
  - Depression [Recovered/Resolved]
  - Arthritis bacterial [None]
  - Clostridium colitis [Recovered/Resolved]

NARRATIVE: CASE EVENT DATE: 2014
